FAERS Safety Report 9478893 (Version 1)
Quarter: 2013Q3

REPORT INFORMATION
  Report Type: Spontaneous
  Country: US (occurrence: US)
  Receive Date: 20130827
  Receipt Date: 20130827
  Transmission Date: 20140515
  Serious: Yes (Hospitalization)
  Sender: FDA-Public Use
  Company Number: US-BAYER-2013-103117

PATIENT
  Sex: Female

DRUGS (2)
  1. BETASERON [Suspect]
  2. AVONEX [Suspect]
     Indication: MULTIPLE SCLEROSIS
     Dosage: 30 ?G, OW
     Route: 030
     Dates: start: 20050609, end: 20060615

REACTIONS (2)
  - Bile duct obstruction [Recovered/Resolved]
  - Hepatic enzyme increased [Not Recovered/Not Resolved]
